FAERS Safety Report 26106382 (Version 2)
Quarter: 2025Q4

REPORT INFORMATION
  Report Type: Spontaneous
  Country: SG (occurrence: SG)
  Receive Date: 20251201
  Receipt Date: 20251215
  Transmission Date: 20260119
  Serious: Yes (Death)
  Sender: ROCHE
  Company Number: SG-ROCHE-10000444749

PATIENT
  Age: 72 Year
  Sex: Female

DRUGS (1)
  1. PHESGO [Suspect]
     Active Substance: HYALURONIDASE-ZZXF\PERTUZUMAB\TRASTUZUMAB
     Indication: Breast cancer

REACTIONS (1)
  - Neoplasm malignant [Fatal]
